FAERS Safety Report 5380498-5 (Version None)
Quarter: 2007Q3

REPORT INFORMATION
  Report Type: 
  Country: None (occurrence: None)
  Receive Date: 20070706
  Receipt Date: 20070628
  Transmission Date: 20080115
  Serious: No
  Sender: FDA-Public Use
  Company Number: A0654317A

PATIENT
  Age: 58 Year
  Sex: Female

DRUGS (2)
  1. TYKERB [Suspect]
     Indication: DRUG USE FOR UNKNOWN INDICATION
     Dosage: 1250MG UNKNOWN
     Route: 048
     Dates: start: 20070531, end: 20070601
  2. XELODA [Concomitant]
     Indication: BREAST CANCER
     Dates: start: 20070524, end: 20070606

REACTIONS (2)
  - DIARRHOEA [None]
  - NAUSEA [None]
